FAERS Safety Report 7737877-8 (Version None)
Quarter: 2011Q3

REPORT INFORMATION
  Report Type: 
  Country: None (occurrence: None)
  Receive Date: 20110908
  Receipt Date: 20110901
  Transmission Date: 20111222
  Serious: Yes (Other)
  Sender: FDA-Public Use
  Company Number: PHHY2011CO78294

PATIENT
  Sex: Female

DRUGS (1)
  1. TASIGNA [Suspect]
     Indication: CHRONIC MYELOID LEUKAEMIA
     Dosage: 800 MG, UNK
     Route: 048
     Dates: start: 20110820, end: 20110830

REACTIONS (4)
  - PRURITUS [None]
  - URTICARIA [None]
  - HAEMOLYTIC ANAEMIA [None]
  - OCULAR ICTERUS [None]
